FAERS Safety Report 7278135-8 (Version None)
Quarter: 2011Q1

REPORT INFORMATION
  Report Type: 
  Country: None (occurrence: None)
  Receive Date: 20110207
  Receipt Date: 20110203
  Transmission Date: 20110831
  Serious: Yes (Hospitalization)
  Sender: FDA-Public Use
  Company Number: A0788960A

PATIENT
  Age: 39 Year
  Sex: Male
  Weight: 131.8 kg

DRUGS (8)
  1. AVANDIA [Suspect]
     Route: 048
     Dates: start: 19990801
  2. AVANDAMET [Suspect]
     Dosage: 4MG TWICE PER DAY
     Route: 048
     Dates: start: 20030318, end: 20050630
  3. WELLBUTRIN [Concomitant]
  4. KLONOPIN [Concomitant]
  5. ZOLOFT [Concomitant]
  6. ALTACE [Concomitant]
  7. CRESTOR [Concomitant]
  8. PROZAC [Concomitant]

REACTIONS (1)
  - MYOCARDIAL INFARCTION [None]
